FAERS Safety Report 18987397 (Version 1)
Quarter: 2021Q1

REPORT INFORMATION
  Report Type: Spontaneous
  Country: ES (occurrence: ES)
  Receive Date: 20210309
  Receipt Date: 20210309
  Transmission Date: 20210420
  Serious: No
  Sender: FDA-Public Use
  Company Number: ES-ALLERGAN-2110360US

PATIENT
  Age: 68 Year
  Sex: Female

DRUGS (1)
  1. ASENAPINE MALEATE ? BP [Suspect]
     Active Substance: ASENAPINE MALEATE
     Indication: IMPULSE-CONTROL DISORDER
     Dosage: 5 MG, QD
     Route: 060
     Dates: start: 20210204

REACTIONS (3)
  - Dysphagia [Recovered/Resolved]
  - Nightmare [Recovered/Resolved]
  - Dyspnoea [Recovered/Resolved]

NARRATIVE: CASE EVENT DATE: 20210204
